FAERS Safety Report 20969088 (Version 2)
Quarter: 2022Q3

REPORT INFORMATION
  Report Type: Spontaneous
  Country: US (occurrence: None)
  Receive Date: 20220616
  Receipt Date: 20220712
  Transmission Date: 20221027
  Serious: No
  Sender: FDA-Public Use
  Company Number: 2022A214721

PATIENT
  Age: 79 Year
  Sex: Female
  Weight: 65.8 kg

DRUGS (25)
  1. SYMBICORT [Suspect]
     Active Substance: BUDESONIDE\FORMOTEROL FUMARATE DIHYDRATE
     Indication: Pneumonia
     Dosage: 2 PUFFS TWICE DAILY
     Route: 055
     Dates: start: 20220502
  2. SYMBICORT [Suspect]
     Active Substance: BUDESONIDE\FORMOTEROL FUMARATE DIHYDRATE
     Indication: Eosinophilic bronchitis
     Dosage: 2 PUFFS TWICE DAILY
     Route: 055
     Dates: start: 20220502
  3. SYMBICORT [Suspect]
     Active Substance: BUDESONIDE\FORMOTEROL FUMARATE DIHYDRATE
     Indication: Cough
     Dosage: 2 PUFFS TWICE DAILY
     Route: 055
     Dates: start: 20220502
  4. SYMBICORT [Suspect]
     Active Substance: BUDESONIDE\FORMOTEROL FUMARATE DIHYDRATE
     Indication: Pneumonia
     Dosage: 2 PUFFS TWICE DAILY
     Route: 055
     Dates: start: 20220607
  5. SYMBICORT [Suspect]
     Active Substance: BUDESONIDE\FORMOTEROL FUMARATE DIHYDRATE
     Indication: Eosinophilic bronchitis
     Dosage: 2 PUFFS TWICE DAILY
     Route: 055
     Dates: start: 20220607
  6. SYMBICORT [Suspect]
     Active Substance: BUDESONIDE\FORMOTEROL FUMARATE DIHYDRATE
     Indication: Cough
     Dosage: 2 PUFFS TWICE DAILY
     Route: 055
     Dates: start: 20220607
  7. QUETIAPINE FUMARATE [Suspect]
     Active Substance: QUETIAPINE FUMARATE
     Indication: Bipolar disorder
     Route: 048
  8. BIOTIN [Concomitant]
     Active Substance: BIOTIN
  9. ALBUTEROL SULFATE [Concomitant]
     Active Substance: ALBUTEROL SULFATE
  10. VOLTAREN [Concomitant]
     Active Substance: DICLOFENAC SODIUM
  11. DOCUSATE SODIUM [Concomitant]
     Active Substance: DOCUSATE SODIUM
  12. EZETIMIBE [Concomitant]
     Active Substance: EZETIMIBE
  13. AZELASTINE HYDROCHLORIDE [Concomitant]
     Active Substance: AZELASTINE HYDROCHLORIDE
     Route: 045
  14. FLUTICASONE [Concomitant]
     Active Substance: FLUTICASONE
  15. IBUPROFEN [Concomitant]
     Active Substance: IBUPROFEN
  16. ACIDOPHILUS [Concomitant]
     Active Substance: LACTOBACILLUS ACIDOPHILUS
  17. LEVOTHYROXINE [Concomitant]
     Active Substance: LEVOTHYROXINE
  18. LOVASTATIN [Concomitant]
     Active Substance: LOVASTATIN
  19. MEMANTINE [Concomitant]
     Active Substance: MEMANTINE
  20. OXCARBAZEPINE [Concomitant]
     Active Substance: OXCARBAZEPINE
  21. OXYBUTYNIN [Concomitant]
     Active Substance: OXYBUTYNIN
  22. PANTOPRAZOLE [Concomitant]
     Active Substance: PANTOPRAZOLE
  23. PAROXETINE [Concomitant]
     Active Substance: PAROXETINE
  24. PRIMIDONE [Concomitant]
     Active Substance: PRIMIDONE
  25. NEILMED SINUS RINSE [Concomitant]
     Active Substance: SODIUM BICARBONATE\SODIUM CHLORIDE

REACTIONS (9)
  - Cough [Unknown]
  - Eosinophilic bronchitis [Not Recovered/Not Resolved]
  - Pneumonia [Recovered/Resolved]
  - Device delivery system issue [Not Recovered/Not Resolved]
  - Device malfunction [Unknown]
  - Device use issue [Recovered/Resolved]
  - Drug ineffective [Not Recovered/Not Resolved]
  - Off label use [Not Recovered/Not Resolved]
  - Product dose omission issue [Unknown]

NARRATIVE: CASE EVENT DATE: 20220101
